FAERS Safety Report 7731040-2 (Version None)
Quarter: 2011Q3

REPORT INFORMATION
  Report Type: 
  Country: None (occurrence: None)
  Receive Date: 20110906
  Receipt Date: 20110906
  Transmission Date: 20111222
  Serious: Yes (Hospitalization)
  Sender: FDA-Public Use
  Company Number: None

PATIENT
  Age: 55 Year
  Sex: Male
  Weight: 89.5 kg

DRUGS (12)
  1. VALTREX [Concomitant]
  2. DIOVAN [Concomitant]
  3. MUCINEX [Concomitant]
  4. MULTI-VITAMIN [Concomitant]
  5. PRILOSEC [Concomitant]
  6. VITAMIN B-12 [Concomitant]
  7. PAXIL [Concomitant]
  8. VICODIN [Concomitant]
  9. REVLIMID [Suspect]
     Indication: CHRONIC LYMPHOCYTIC LEUKAEMIA RECURRENT
     Dosage: 5MG
     Route: 048
     Dates: start: 20110805, end: 20110826
  10. SIMVASTATIN [Concomitant]
  11. IBUPROFEN [Concomitant]
  12. B COMPLEX VITAMINS [Concomitant]

REACTIONS (5)
  - SINUSITIS [None]
  - TREATMENT NONCOMPLIANCE [None]
  - BRONCHITIS [None]
  - PNEUMONIA [None]
  - NEUTROPENIA [None]
